FAERS Safety Report 8153754-5 (Version None)
Quarter: 2012Q1

REPORT INFORMATION
  Report Type: 
  Country: None (occurrence: None)
  Receive Date: 20120221
  Receipt Date: 20120215
  Transmission Date: 20120608
  Serious: Yes (Hospitalization, Other)
  Sender: FDA-Public Use
  Company Number: US-GLAXOSMITHKLINE-A0962534A

PATIENT
  Age: 87 Year
  Sex: Female
  Weight: 50 kg

DRUGS (3)
  1. FLOLAN [Suspect]
     Indication: PRODUCT USED FOR UNKNOWN INDICATION
     Dosage: 3.5NGKM UNKNOWN
     Route: 042
     Dates: start: 20120109
  2. VIAGRA [Concomitant]
  3. DIGOXIN [Concomitant]

REACTIONS (5)
  - ORAL CANDIDIASIS [None]
  - INCONTINENCE [None]
  - URINARY TRACT INFECTION [None]
  - DYSPNOEA [None]
  - RALES [None]
